FAERS Safety Report 5957359-3 (Version None)
Quarter: 2008Q4

REPORT INFORMATION
  Report Type: 
  Country: None (occurrence: None)
  Receive Date: 20081114
  Receipt Date: 20081106
  Transmission Date: 20090506
  Serious: Yes (Hospitalization)
  Sender: FDA-Public Use
  Company Number: 2008SP022757

PATIENT
  Age: 65 Year
  Sex: Female

DRUGS (7)
  1. RIBAVIRIN [Suspect]
     Indication: HEPATITIS C
     Dosage: ; QD; PO, 800 MG; QD;
     Route: 048
     Dates: start: 20080423, end: 20080701
  2. RIBAVIRIN [Suspect]
     Indication: HEPATITIS C
     Dosage: ; QD; PO, 800 MG; QD;
     Route: 048
     Dates: start: 20080702
  3. PEG-INTRON [Suspect]
     Indication: HEPATITIS C
     Dosage: ; QW; SC, 80 MCG; QW;
     Route: 058
     Dates: start: 20080423, end: 20080813
  4. PEG-INTRON [Suspect]
     Indication: HEPATITIS C
     Dosage: ; QW; SC, 80 MCG; QW;
     Route: 058
     Dates: start: 20080814
  5. INVESTIGATIONAL DRUG (INVESTIGATIONAL DRUG) [Suspect]
     Indication: THROMBOCYTOPENIA
     Dosage: ; QD; PO
     Route: 048
     Dates: start: 20080423
  6. ELTROMBOPAG (ELTROMBOPAG) [Suspect]
     Indication: THROMBOCYTOPENIA
     Dosage: 25 MG; QD; PO, 50 MG; QD; PO
     Route: 048
     Dates: start: 20080401, end: 20080415
  7. ELTROMBOPAG (ELTROMBOPAG) [Suspect]
     Indication: THROMBOCYTOPENIA
     Dosage: 25 MG; QD; PO, 50 MG; QD; PO
     Route: 048
     Dates: start: 20080416, end: 20080422

REACTIONS (1)
  - OESOPHAGEAL VARICES HAEMORRHAGE [None]
